FAERS Safety Report 11645569 (Version 1)
Quarter: 2015Q4

REPORT INFORMATION
  Report Type: Spontaneous
  Country: US (occurrence: US)
  Receive Date: 20151020
  Receipt Date: 20151020
  Transmission Date: 20160304
  Serious: Yes (Hospitalization)
  Sender: FDA-Public Use
  Company Number: US-PFIZER INC-2015337842

PATIENT
  Age: 92 Year
  Sex: Female
  Weight: 62 kg

DRUGS (7)
  1. CILOSTAZOL. [Concomitant]
     Active Substance: CILOSTAZOL
     Indication: CARDIOVASCULAR INSUFFICIENCY
  2. SUTENT [Suspect]
     Active Substance: SUNITINIB MALATE
     Indication: ABDOMINAL NEOPLASM
     Dosage: 25 MG, 1X/DAY
     Route: 048
     Dates: start: 20150827, end: 20150922
  3. WARFARIN [Interacting]
     Active Substance: WARFARIN
     Dosage: UNK
  4. LOSARTAN AND HYDROCHLOROTHIAZIDE [Concomitant]
     Active Substance: HYDROCHLOROTHIAZIDE\LOSARTAN POTASSIUM
     Indication: CARDIAC DISORDER
     Dosage: 1 DF, DAILY (50MG LOSARTAN POTASSIUM)/12.5 MG HYDROCHLOROTHIAZIDE)
     Route: 048
  5. CILOSTAZOL. [Concomitant]
     Active Substance: CILOSTAZOL
     Indication: BLOOD CHOLESTEROL ABNORMAL
     Dosage: 100 MG, 2X/DAY
     Route: 048
  6. METOPROLOL [Concomitant]
     Active Substance: METOPROLOL
     Indication: CARDIOVASCULAR INSUFFICIENCY
     Dosage: 50 MG, 2X/DAY
  7. ATORVASTATIN [Concomitant]
     Active Substance: ATORVASTATIN
     Indication: CARDIOVASCULAR INSUFFICIENCY
     Dosage: 10 MG, DAILY

REACTIONS (6)
  - Drug interaction [Unknown]
  - Feeding disorder [Unknown]
  - Asthenia [Not Recovered/Not Resolved]
  - Decreased appetite [Unknown]
  - Nausea [Unknown]
  - Intra-abdominal haemorrhage [Unknown]
